FAERS Safety Report 24216723 (Version 1)
Quarter: 2024Q3

REPORT INFORMATION
  Report Type: Spontaneous
  Country: US (occurrence: None)
  Receive Date: 20240815
  Receipt Date: 20240815
  Transmission Date: 20241016
  Serious: Yes (Hospitalization)
  Sender: Public
  Company Number: None

PATIENT
  Age: 79 Year
  Sex: Male

DRUGS (2)
  1. ABIRATERONE [Suspect]
     Active Substance: ABIRATERONE
     Indication: Prostate cancer
     Dosage: 1,000MG DAILY
  2. PRIMIDONE [Suspect]
     Active Substance: PRIMIDONE

REACTIONS (3)
  - Wound infection [None]
  - Drug interaction [None]
  - Fall [None]
